FAERS Safety Report 10010353 (Version 1)
Quarter: 2014Q1

REPORT INFORMATION
  Report Type: Spontaneous
  Country: BR (occurrence: BR)
  Receive Date: 20140314
  Receipt Date: 20140314
  Transmission Date: 20141002
  Serious: Yes (Other)
  Sender: FDA-Public Use
  Company Number: BR-AMGEN-BRASP2014017756

PATIENT
  Age: 41 Year
  Sex: Female
  Weight: 50 kg

DRUGS (3)
  1. ENBREL [Suspect]
     Indication: ANKYLOSING SPONDYLITIS
     Dosage: 50 MG, ONCE WEEKLY
     Route: 065
  2. CATAFLAM                           /00372302/ [Concomitant]
     Indication: PAIN
     Dosage: WHEN FEELING MUCH PAIN
  3. DICLOFENAC [Concomitant]
     Indication: PAIN
     Dosage: WHEN FEELING MUCH PAIN

REACTIONS (8)
  - Breast haemorrhage [Unknown]
  - Breast mass [Unknown]
  - Breast pain [Unknown]
  - Wrong technique in drug usage process [Unknown]
  - Abdominal distension [Unknown]
  - Dyspepsia [Unknown]
  - Injection site pain [Unknown]
  - Injection site haematoma [Unknown]
